FAERS Safety Report 16909544 (Version 1)
Quarter: 2019Q4

REPORT INFORMATION
  Report Type: Spontaneous
  Country: CN (occurrence: CN)
  Receive Date: 20191011
  Receipt Date: 20191011
  Transmission Date: 20200122
  Serious: Yes (Other)
  Sender: FDA-Public Use
  Company Number: CN-ASTRAZENECA-2019SF35729

PATIENT
  Age: 24471 Day
  Sex: Female

DRUGS (1)
  1. GEFITINIB. [Suspect]
     Active Substance: GEFITINIB
     Indication: TARGETED CANCER THERAPY
     Route: 048
     Dates: start: 20190110, end: 20190907

REACTIONS (10)
  - Lymphangitis [Unknown]
  - Arteriosclerosis coronary artery [Unknown]
  - Cerebral disorder [Unknown]
  - Pruritus [Unknown]
  - Pulmonary hilum mass [Unknown]
  - Rash [Recovering/Resolving]
  - Pleural effusion [Unknown]
  - Mediastinal disorder [Unknown]
  - Cardiomegaly [Unknown]
  - Pericardial effusion [Unknown]

NARRATIVE: CASE EVENT DATE: 20190720
